FAERS Safety Report 6308223-1 (Version None)
Quarter: 2009Q3

REPORT INFORMATION
  Report Type: 
  Country: None (occurrence: None)
  Receive Date: 20090813
  Receipt Date: 20090804
  Transmission Date: 20100115
  Serious: Yes (Other)
  Sender: FDA-Public Use
  Company Number: GB-PFIZER INC-2009249787

PATIENT
  Age: 41 Year

DRUGS (2)
  1. DOXYCYCLINE HYCLATE [Suspect]
     Indication: MALARIA PROPHYLAXIS
     Dosage: 100 MG, 1X/DAY
     Route: 048
     Dates: start: 20090501
  2. ZOPICLONE [Concomitant]
     Indication: POOR QUALITY SLEEP
     Dosage: 3.75 MG, UNK
     Route: 048
     Dates: start: 20090615

REACTIONS (6)
  - DEPRESSED MOOD [None]
  - DEPRESSION [None]
  - MALAISE [None]
  - NAUSEA [None]
  - PANIC ATTACK [None]
  - VOMITING [None]
